FAERS Safety Report 26219133 (Version 1)
Quarter: 2025Q4

REPORT INFORMATION
  Report Type: Spontaneous
  Country: IL (occurrence: IL)
  Receive Date: 20251231
  Receipt Date: 20251231
  Transmission Date: 20260117
  Serious: Yes (Hospitalization)
  Sender: PRECISION DOSE, INC.
  Company Number: IL-PRECISION DOSE, INC.-2025PRD00015

PATIENT
  Age: 14 Year
  Sex: Male

DRUGS (1)
  1. DOXYCYCLINE [Suspect]
     Active Substance: DOXYCYCLINE
     Indication: Cat scratch disease
     Dosage: UNK
     Route: 042

REACTIONS (1)
  - Jarisch-Herxheimer reaction [Recovered/Resolved]
